FAERS Safety Report 9144094 (Version 1)
Quarter: 2013Q1

REPORT INFORMATION
  Report Type: Spontaneous
  Country: FR (occurrence: FR)
  Receive Date: 20130306
  Receipt Date: 20130306
  Transmission Date: 20140127
  Serious: Yes (Hospitalization)
  Sender: FDA-Public Use
  Company Number: FR-PFIZER INC-2013071467

PATIENT
  Age: 38 Year
  Sex: Male

DRUGS (28)
  1. ZYVOXID [Suspect]
     Dosage: UNK
     Dates: start: 20130115, end: 20130124
  2. MERONEM [Suspect]
     Dosage: UNK
     Route: 042
     Dates: start: 20130115, end: 20130124
  3. NIMBEX [Concomitant]
     Dosage: UNK
     Dates: start: 20130104, end: 20130118
  4. HYDROCORTISONE HEMISUCCINATE [Concomitant]
     Dosage: UNK
     Dates: start: 20130104, end: 20130116
  5. ACLOTINE [Concomitant]
     Dosage: UNK
     Dates: start: 20130105, end: 20130105
  6. PERFALGAN [Concomitant]
     Dosage: UNK
     Dates: start: 20130114, end: 20130116
  7. GENTAMICIN [Concomitant]
     Dosage: UNK
     Dates: start: 20130115, end: 20130115
  8. CIPROFLOXACIN [Concomitant]
     Dosage: UNK
     Dates: start: 20130117, end: 20130117
  9. UMULINE [Concomitant]
     Dosage: UNK
     Dates: start: 20121231
  10. MIDAZOLAM [Concomitant]
     Dosage: UNK
     Dates: start: 20121231, end: 20130118
  11. SUFENTA [Concomitant]
     Dosage: UNK
     Dates: start: 20121231, end: 20130123
  12. CEFTRIAXONE [Concomitant]
     Dosage: UNK
     Dates: start: 20121231, end: 20130103
  13. METRONIDAZOLE [Concomitant]
     Dosage: UNK
     Dates: start: 20121231, end: 20130102
  14. ACUPAN [Concomitant]
     Dosage: UNK
     Dates: start: 20121231, end: 20130102
  15. CALCIPARIN [Concomitant]
     Dosage: UNK
     Dates: start: 20130101, end: 20130102
  16. NORADRENALINE [Concomitant]
     Dosage: UNK
     Dates: start: 20121231
  17. PANTOPRAZOLE [Concomitant]
     Dosage: UNK
     Dates: start: 20121231
  18. VECTARION [Concomitant]
     Dosage: UNK
     Dates: start: 20121231
  19. LASILIX [Concomitant]
     Dosage: UNK
     Dates: start: 20121231
  20. LEVOCARNIL [Concomitant]
     Dosage: UNK
     Dates: start: 20121231
  21. FIBRINOGEN [Concomitant]
     Dosage: 2 BOTTLES
     Dates: start: 20130101, end: 20130101
  22. HEPARIN SODIUM [Concomitant]
     Dosage: UNK
     Dates: start: 20130102
  23. FLUIMUCIL [Concomitant]
     Dosage: UNK
     Dates: start: 20130103, end: 20130118
  24. TAZOCILLINE [Concomitant]
     Dosage: UNK
     Dates: start: 20130103, end: 20130108
  25. AMIKACINE ^ION^ [Concomitant]
     Dosage: UNK
     Dates: start: 20130103, end: 20130108
  26. FLUCONAZOLE [Concomitant]
     Dosage: UNK
     Dates: start: 20130103, end: 20130118
  27. ADRENALINE [Concomitant]
     Dosage: UNK
     Dates: start: 20130104, end: 20130106
  28. ACLOTINE [Suspect]
     Dosage: 1000 IU, UNK
     Dates: start: 20130105

REACTIONS (2)
  - Hepatitis cholestatic [Recovering/Resolving]
  - Blood bilirubin increased [Recovering/Resolving]
